FAERS Safety Report 12201598 (Version 1)
Quarter: 2016Q1

REPORT INFORMATION
  Report Type: Spontaneous
  Country: US (occurrence: US)
  Receive Date: 20160322
  Receipt Date: 20160322
  Transmission Date: 20160526
  Serious: Yes (Other)
  Sender: FDA-Public Use
  Company Number: US-SA-2015SA119289

PATIENT
  Age: 77 Year
  Sex: Female

DRUGS (1)
  1. NASACORT ALLERGY 24HR [Suspect]
     Active Substance: TRIAMCINOLONE ACETONIDE
     Indication: HYPERSENSITIVITY
     Dosage: 55/2 EACH NOSTRIL
     Route: 045

REACTIONS (4)
  - Nasal congestion [Unknown]
  - Cataract [Unknown]
  - Upper respiratory tract congestion [Unknown]
  - Sneezing [Unknown]
